FAERS Safety Report 8347035-4 (Version None)
Quarter: 2012Q2

REPORT INFORMATION
  Report Type: 
  Country: None (occurrence: None)
  Receive Date: 20120509
  Receipt Date: 20120507
  Transmission Date: 20120825
  Serious: Yes (Hospitalization)
  Sender: FDA-Public Use
  Company Number: PHHO2012NL004677

PATIENT
  Sex: Female
  Weight: 33.4 kg

DRUGS (9)
  1. AZITHROMYCIN [Concomitant]
     Indication: INFECTION
     Dosage: 375 MG, QD
     Route: 048
     Dates: start: 20120316
  2. MYCOPHENOLATE MOFETIL (CELLCEPT) [Suspect]
     Indication: STEM CELL TRANSPLANT
     Dosage: 500 MG, BID
     Route: 048
     Dates: start: 20120113
  3. TASIGNA [Suspect]
     Indication: CHRONIC MYELOID LEUKAEMIA
     Dosage: 250 MG, BID
     Route: 048
     Dates: start: 20120126, end: 20120224
  4. TASIGNA [Suspect]
     Dosage: 300 MG, BID
     Route: 048
     Dates: start: 20120225, end: 20120319
  5. CYCLOSPORINE [Suspect]
     Indication: STEM CELL TRANSPLANT
     Dosage: 100 MG, BID
     Route: 048
     Dates: start: 20111206
  6. COTRIM [Concomitant]
     Indication: INFECTION PROPHYLAXIS
     Dosage: 480 MG, 3 X A WEEKK
     Route: 048
  7. TASIGNA [Suspect]
     Dosage: 250 MG, BID
     Route: 048
     Dates: start: 20120320, end: 20120320
  8. PREDNISONE [Concomitant]
     Indication: ANAEMIA HAEMOLYTIC AUTOIMMUNE
     Dosage: 10 MG, BID
     Route: 048
     Dates: start: 20120113
  9. NIFEDIPINE [Concomitant]
     Indication: HYPERTENSION
     Dosage: 5 MG, BID
     Route: 048
     Dates: start: 20120125

REACTIONS (1)
  - RENAL FAILURE [None]
